FAERS Safety Report 25169625 (Version 1)
Quarter: 2025Q2

REPORT INFORMATION
  Report Type: Spontaneous
  Country: US (occurrence: US)
  Receive Date: 20250407
  Receipt Date: 20250407
  Transmission Date: 20250716
  Serious: No
  Sender: APELLIS PHARMACEUTICALS
  Company Number: US-APELLIS-2025-APL-0000954

PATIENT

DRUGS (3)
  1. EMPAVELI [Suspect]
     Active Substance: PEGCETACOPLAN
     Indication: C3 glomerulopathy
     Dates: start: 20250317
  2. EMPAVELI [Suspect]
     Active Substance: PEGCETACOPLAN
     Dosage: 486MG, 2X WEEKLY
     Route: 058
     Dates: start: 20250331
  3. SOLIRIS [Suspect]
     Active Substance: ECULIZUMAB
     Indication: Product used for unknown indication
     Dates: start: 20241127, end: 20250401

REACTIONS (1)
  - Rash [Not Recovered/Not Resolved]

NARRATIVE: CASE EVENT DATE: 20250401
